FAERS Safety Report 6571665-3 (Version None)
Quarter: 2010Q1

REPORT INFORMATION
  Report Type: 
  Country: None (occurrence: None)
  Receive Date: 20100205
  Receipt Date: 20100203
  Transmission Date: 20100710
  Serious: Yes (Death, Hospitalization)
  Sender: FDA-Public Use
  Company Number: PHHY2010MX04487

PATIENT
  Sex: Female

DRUGS (6)
  1. TEGRETOL [Suspect]
     Indication: EPILEPSY
     Dosage: 3 TABLETS (200 MG) PER DAY
     Dates: start: 19990701, end: 20100107
  2. SPIRIVA [Concomitant]
     Dosage: UNK
     Dates: start: 20070101
  3. SEPTRIN [Concomitant]
     Dosage: UNK
     Dates: start: 19990501
  4. SYMBICORT [Concomitant]
  5. TEOLONG [Concomitant]
     Dosage: UNK
     Dates: start: 20091101
  6. BRONCHO-VAXOM [Concomitant]
     Dosage: UNK
     Dates: start: 20091101

REACTIONS (4)
  - DYSPNOEA [None]
  - EMPHYSEMA [None]
  - RESPIRATORY ARREST [None]
  - TUBERCULOSIS [None]
